FAERS Safety Report 6534054-3 (Version None)
Quarter: 2010Q1

REPORT INFORMATION
  Report Type: 
  Country: None (occurrence: None)
  Receive Date: 20100112
  Receipt Date: 20091109
  Transmission Date: 20100710
  Serious: Yes (Life-Threatening, Other)
  Sender: FDA-Public Use
  Company Number: JP-BAYER-200935467GPV

PATIENT
  Age: 66 Year
  Sex: Male

DRUGS (19)
  1. GLUCOBAY [Suspect]
     Indication: DRUG USE FOR UNKNOWN INDICATION
     Dosage: TOTAL DAILY DOSE: 300 MG
     Route: 048
     Dates: start: 20090512, end: 20090917
  2. GLUCOBAY [Suspect]
     Dosage: TOTAL DAILY DOSE: 300 MG
     Route: 048
  3. CHLORPROMAZINE [Suspect]
     Indication: DRUG USE FOR UNKNOWN INDICATION
     Dosage: TOTAL DAILY DOSE: 75 MG
     Route: 048
     Dates: start: 20090907, end: 20090917
  4. CHLORPROMAZINE [Suspect]
     Dosage: TOTAL DAILY DOSE: 300 MG
     Route: 048
     Dates: end: 20090303
  5. CHLORPROMAZINE [Suspect]
     Dosage: TOTAL DAILY DOSE: 150 MG
     Route: 048
     Dates: start: 20090819, end: 20090906
  6. CHLORPROMAZINE [Suspect]
     Dosage: TOTAL DAILY DOSE: 250 MG
     Route: 048
     Dates: start: 20090304, end: 20090818
  7. VASOLAN [Suspect]
     Indication: DRUG USE FOR UNKNOWN INDICATION
     Dosage: START DATE: BEFORE 2000
     Route: 048
     Dates: end: 20090917
  8. MAGNESIUM OXIDE [Suspect]
     Indication: DRUG USE FOR UNKNOWN INDICATION
     Dosage: TOTAL DAILY DOSE: 1.5 G
     Route: 048
     Dates: end: 20090917
  9. ABILIFY [Suspect]
     Indication: SCHIZOPHRENIA
     Dosage: TOTAL DAILY DOSE: 24 MG
     Route: 048
     Dates: start: 20091020
  10. ABILIFY [Suspect]
     Dates: start: 20090909
  11. ABILIFY [Suspect]
     Dosage: TOTAL DAILY DOSE: 24 MG
     Route: 048
     Dates: start: 20090907, end: 20090908
  12. ABILIFY [Suspect]
     Dosage: TOTAL DAILY DOSE: 30 MG
     Route: 048
     Dates: start: 20090819
  13. ABILIFY [Suspect]
     Dosage: TOTAL DAILY DOSE: 12 MG
     Route: 048
     Dates: start: 20090819, end: 20090906
  14. ABILIFY [Suspect]
     Dosage: TOTAL DAILY DOSE: 12 MG
     Route: 048
     Dates: start: 20091001, end: 20091019
  15. RISPERDAL [Suspect]
     Indication: SCHIZOPHRENIA
     Dosage: TOTAL DAILY DOSE: 12 MG
     Route: 048
     Dates: end: 20090917
  16. LONASEN (BLONANSERIN) [Suspect]
     Indication: PSYCHIATRIC SYMPTOM
     Dosage: TOTAL DAILY DOSE: 24 MG
     Route: 048
     Dates: start: 20090316, end: 20090917
  17. LONASEN (BLONANSERIN) [Suspect]
     Route: 048
     Dates: start: 20090316
  18. TASMOLIN [Suspect]
     Indication: DRUG USE FOR UNKNOWN INDICATION
     Dosage: TOTAL DAILY DOSE: 3 MG
     Route: 048
     Dates: end: 20090917
  19. SODIUM PICOSULFATE [Suspect]
     Indication: DRUG USE FOR UNKNOWN INDICATION
     Dosage: START DATE: BEFORE 2000
     Route: 048
     Dates: end: 20090917

REACTIONS (2)
  - INTESTINAL OBSTRUCTION [None]
  - URINARY RETENTION [None]
